FAERS Safety Report 4636725-2 (Version None)
Quarter: 2005Q2

REPORT INFORMATION
  Report Type: 
  Country: None (occurrence: None)
  Receive Date: 20050414
  Receipt Date: 20050330
  Transmission Date: 20051028
  Serious: Yes (Hospitalization)
  Sender: FDA-Public Use
  Company Number: 2005SP000100

PATIENT
  Age: 71 Year
  Sex: Male
  Weight: 92.9874 kg

DRUGS (21)
  1. XOPENEX [Suspect]
     Indication: CHRONIC OBSTRUCTIVE PULMONARY DISEASE
     Dosage: 1.25 MG; Q6H; INHALATION
     Route: 055
     Dates: start: 20041011, end: 20041015
  2. SOLU-MEDROL [Concomitant]
  3. XANAX [Concomitant]
  4. LOZENGES [Concomitant]
  5. DARVOCET-N 100 [Concomitant]
  6. PREDISONE [Concomitant]
  7. SPIRIVA [Concomitant]
  8. RHINOCORT [Concomitant]
  9. SOLU-MEDROL [Concomitant]
  10. MUCINEX [Concomitant]
  11. PEPCID [Concomitant]
  12. POTASSIUM CHLORIDE [Concomitant]
  13. ATROVENT [Concomitant]
  14. IMODIUM [Concomitant]
  15. LEVAQUIN [Concomitant]
  16. LOVENOX [Concomitant]
  17. ASACOL [Concomitant]
  18. COLESTID [Concomitant]
  19. SYNTHROID [Concomitant]
  20. NEURONTIN [Concomitant]
  21. HYTRIN [Concomitant]

REACTIONS (6)
  - ACUTE RESPIRATORY FAILURE [None]
  - BLOOD PH INCREASED [None]
  - CHRONIC OBSTRUCTIVE AIRWAYS DISEASE EXACERBATED [None]
  - CHRONIC RESPIRATORY FAILURE [None]
  - PCO2 DECREASED [None]
  - PO2 DECREASED [None]
